FAERS Safety Report 22175682 (Version 1)
Quarter: 2023Q2

REPORT INFORMATION
  Report Type: Spontaneous
  Country: US (occurrence: US)
  Receive Date: 20230405
  Receipt Date: 20230405
  Transmission Date: 20230722
  Serious: Yes (Hospitalization, Other)
  Sender: FDA-Public Use
  Company Number: US-GLAXOSMITHKLINE-US2023047917

PATIENT

DRUGS (1)
  1. ADVAIR DISKUS [Suspect]
     Active Substance: FLUTICASONE PROPIONATE\SALMETEROL XINAFOATE
     Indication: Pulmonary fibrosis
     Dosage: 1 PUFF(S), BID, ADVAIR DISKUS 500/50MCG (RED) 60S USE 1 INH BY MOUTH TWICE DAILY
     Route: 055
     Dates: start: 20230330

REACTIONS (2)
  - Pneumonia [Unknown]
  - Off label use [Unknown]
